FAERS Safety Report 9707865 (Version 1)
Quarter: 2013Q4

REPORT INFORMATION
  Report Type: Spontaneous
  Country: US (occurrence: US)
  Receive Date: 20131125
  Receipt Date: 20131125
  Transmission Date: 20140711
  Serious: No
  Sender: FDA-Public Use
  Company Number: US-009507513-1311USA006417

PATIENT
  Age: 26 Year
  Sex: Female
  Weight: 101.8 kg

DRUGS (1)
  1. NEXPLANON [Suspect]
     Indication: CONTRACEPTION
     Dosage: 1 DF, UNK
     Route: 059
     Dates: start: 20130701, end: 20131112

REACTIONS (2)
  - Device breakage [Unknown]
  - No adverse event [Unknown]
